FAERS Safety Report 7630346 (Version 5)
Quarter: 2013Q1

REPORT INFORMATION
  Report Type: Spontaneous
  Country: US (occurrence: US)
  Receive Date: 20101015
  Receipt Date: 20130312
  Transmission Date: 20140127
  Serious: Yes (Hospitalization)
  Sender: FDA-Public Use
  Company Number: US-BIOGENIDEC-2010BI034820

PATIENT
  Age: 49 Year
  Sex: Male

DRUGS (1)
  1. TYSABRI [Suspect]
     Indication: MULTIPLE SCLEROSIS
     Route: 042
     Dates: start: 20080310

REACTIONS (5)
  - Femur fracture [Recovered/Resolved]
  - Fall [Recovered/Resolved]
  - Lower limb fracture [Recovered/Resolved]
  - Fatigue [Not Recovered/Not Resolved]
  - Local swelling [Not Recovered/Not Resolved]
